FAERS Safety Report 13702831 (Version 1)
Quarter: 2017Q2

REPORT INFORMATION
  Report Type: Spontaneous
  Country: JP (occurrence: JP)
  Receive Date: 20170629
  Receipt Date: 20170629
  Transmission Date: 20170830
  Serious: Yes (Other)
  Sender: FDA-Public Use
  Company Number: JP-TEVA-781233ROM

PATIENT
  Age: 64 Year
  Sex: Male
  Weight: 65 kg

DRUGS (3)
  1. NICARDIPINE [Suspect]
     Active Substance: NICARDIPINE
     Indication: RENOVASCULAR HYPERTENSION
     Dosage: 2 MG/HOUR
     Route: 042
  2. AMLODIPINE [Suspect]
     Active Substance: AMLODIPINE BESYLATE
     Indication: RENOVASCULAR HYPERTENSION
     Dosage: 10MG/DAY
     Route: 048
  3. OLMESARTAN MEDOXOMIL. [Suspect]
     Active Substance: OLMESARTAN MEDOXOMIL
     Indication: RENOVASCULAR HYPERTENSION
     Dosage: 20 MG/DAY
     Route: 048

REACTIONS (2)
  - Blood pressure decreased [Recovered/Resolved]
  - Acute kidney injury [Recovered/Resolved]
